FAERS Safety Report 17093621 (Version 1)
Quarter: 2019Q4

REPORT INFORMATION
  Report Type: Spontaneous
  Country: RU (occurrence: RU)
  Receive Date: 20191129
  Receipt Date: 20191129
  Transmission Date: 20200122
  Serious: Yes (Death, Life-Threatening, Hospitalization, Other)
  Sender: FDA-Public Use
  Company Number: RU-ASTRAZENECA-2019SF71301

PATIENT
  Age: 54 Day
  Sex: Male
  Weight: 1.6 kg

DRUGS (1)
  1. SYNAGIS [Suspect]
     Active Substance: PALIVIZUMAB
     Indication: ANTIVIRAL PROPHYLAXIS
     Dosage: 15.0MG/KG ONCE/SINGLE ADMINISTRATION
     Route: 030
     Dates: start: 20191112, end: 20191112

REACTIONS (3)
  - Thrombosis mesenteric vessel [Fatal]
  - Necrotising colitis [Fatal]
  - Poor sucking reflex [Fatal]

NARRATIVE: CASE EVENT DATE: 20191118
